FAERS Safety Report 5161082-5 (Version None)
Quarter: 2006Q4

REPORT INFORMATION
  Report Type: 
  Country: None (occurrence: None)
  Receive Date: 20061121
  Receipt Date: 20061106
  Transmission Date: 20070319
  Serious: Yes (Other)
  Sender: FDA-Public Use
  Company Number: 2006136589

PATIENT
  Age: 60 Year
  Sex: Male
  Weight: 75.4 kg

DRUGS (4)
  1. LYRICA [Suspect]
     Indication: NEURALGIA
     Dosage: (75 MG), ORAL
     Route: 048
     Dates: start: 20061006, end: 20061008
  2. CALCIUM          (CALCIUM) [Concomitant]
  3. DOXAZOSIN              (DOXAZOSIN) [Concomitant]
  4. FINASTERIDE [Concomitant]

REACTIONS (1)
  - JOINT SWELLING [None]
